FAERS Safety Report 13779169 (Version 1)
Quarter: 2017Q3

REPORT INFORMATION
  Report Type: Spontaneous
  Country: US (occurrence: US)
  Receive Date: 20170721
  Receipt Date: 20170721
  Transmission Date: 20171127
  Serious: No
  Sender: FDA-Public Use
  Company Number: PHEH2017US021735

PATIENT

DRUGS (1)
  1. GLEEVEC [Suspect]
     Active Substance: IMATINIB MESYLATE
     Indication: TRISOMY 21
     Dosage: UNK
     Route: 065

REACTIONS (5)
  - Blood magnesium decreased [Unknown]
  - Acidosis [Unknown]
  - Product use issue [Unknown]
  - Blood phosphorus decreased [Unknown]
  - Product use in unapproved indication [Unknown]
